FAERS Safety Report 11908562 (Version 1)
Quarter: 2016Q1

REPORT INFORMATION
  Report Type: Spontaneous
  Country: US (occurrence: US)
  Receive Date: 20160111
  Receipt Date: 20160111
  Transmission Date: 20160526
  Serious: Yes (Other)
  Sender: FDA-Public Use
  Company Number: US-MYLANLABS-2015M1047762

PATIENT

DRUGS (2)
  1. ETOPOSIDE CAPSULES, USP [Suspect]
     Active Substance: ETOPOSIDE
     Indication: FALLOPIAN TUBE CANCER
     Dosage: 50 MG, QD, ON EVEN DAYS
     Dates: start: 201511, end: 20151225
  2. ETOPOSIDE CAPSULES, USP [Suspect]
     Active Substance: ETOPOSIDE
     Indication: OFF LABEL USE
     Dosage: 100 MG, QD, ON ODD DAYS
     Dates: start: 201511, end: 20151225

REACTIONS (3)
  - Rash [Not Recovered/Not Resolved]
  - Drug ineffective for unapproved indication [Not Recovered/Not Resolved]
  - Alopecia [Not Recovered/Not Resolved]

NARRATIVE: CASE EVENT DATE: 201512
